FAERS Safety Report 4842735-2 (Version None)
Quarter: 2005Q4

REPORT INFORMATION
  Report Type: 
  Country: None (occurrence: None)
  Receive Date: 20051201
  Receipt Date: 20050302
  Transmission Date: 20060501
  Serious: Yes (Hospitalization)
  Sender: FDA-Public Use
  Company Number: DE-MERCK-0503DEU00052

PATIENT
  Age: 67 Year
  Sex: Female

DRUGS (5)
  1. VIOXX [Suspect]
     Indication: OSTEOARTHRITIS
     Route: 048
     Dates: start: 20010901, end: 20041024
  2. VIOXX [Suspect]
     Indication: OSTEOCHONDROSIS
     Route: 048
     Dates: start: 20010901, end: 20041024
  3. MORPHINE SULFATE [Concomitant]
     Indication: PAIN
     Route: 048
     Dates: start: 20000501
  4. LEVOMEPROMAZINE MALEATE [Concomitant]
     Indication: INSOMNIA
     Route: 065
     Dates: start: 20011101, end: 20041101
  5. MEPIVACAINE HYDROCHLORIDE [Concomitant]
     Indication: BACK PAIN
     Route: 058

REACTIONS (9)
  - CEREBROVASCULAR ACCIDENT [None]
  - HYPERTENSION [None]
  - NAUSEA [None]
  - NYSTAGMUS [None]
  - TACHYCARDIA [None]
  - THERAPEUTIC RESPONSE DECREASED [None]
  - TINNITUS [None]
  - VERTIGO [None]
  - VOMITING [None]
